FAERS Safety Report 6812686-2 (Version None)
Quarter: 2010Q3

REPORT INFORMATION
  Report Type: 
  Country: None (occurrence: None)
  Receive Date: 20100701
  Receipt Date: 20100622
  Transmission Date: 20110219
  Serious: Yes (Hospitalization)
  Sender: FDA-Public Use
  Company Number: BR-ROCHE-711604

PATIENT
  Sex: Female
  Weight: 68 kg

DRUGS (3)
  1. BONIVA [Suspect]
     Indication: OSTEOPOROSIS
     Route: 048
     Dates: start: 20081001, end: 20100301
  2. AMLOVASC [Concomitant]
     Indication: HYPERTENSION
     Route: 048
     Dates: start: 20070101
  3. DIURIX [Concomitant]
     Indication: HYPERTENSION
     Dosage: WHEN NECESSARY
     Route: 048
     Dates: start: 20070101

REACTIONS (1)
  - SYNCOPE [None]
